FAERS Safety Report 9433493 (Version 2)
Quarter: 2013Q4

REPORT INFORMATION
  Report Type: Report from Study
  Country: JP (occurrence: JP)
  Receive Date: 20130731
  Receipt Date: 20131002
  Transmission Date: 20140711
  Serious: No
  Sender: FDA-Public Use
  Company Number: JP-009507513-1307JPN013982

PATIENT
  Age: 80 Year
  Sex: Male

DRUGS (3)
  1. ZOLINZA CAPSULES 100MG [Suspect]
     Indication: MYCOSIS FUNGOIDES
     Dosage: 300 MG, QD
     Route: 048
     Dates: start: 20130301, end: 20130405
  2. ZOLINZA CAPSULES 100MG [Suspect]
     Dosage: 300 MG, QD
     Route: 048
     Dates: start: 20130419, end: 20130501
  3. ZOLINZA CAPSULES 100MG [Suspect]
     Dosage: 200 MG, QD
     Route: 048
     Dates: start: 20130517

REACTIONS (5)
  - Renal disorder [Recovered/Resolved]
  - Platelet count decreased [Recovered/Resolved]
  - C-reactive protein increased [Recovered/Resolved]
  - Platelet count decreased [Recovered/Resolved]
  - Renal disorder [Recovered/Resolved]
